FAERS Safety Report 4871144-5 (Version None)
Quarter: 2005Q4

REPORT INFORMATION
  Report Type: 
  Country: None (occurrence: None)
  Receive Date: 20051229
  Receipt Date: 20051221
  Transmission Date: 20060501
  Serious: Yes (Hospitalization)
  Sender: FDA-Public Use
  Company Number: 2005-12-1119

PATIENT
  Age: 18 Month
  Sex: Female
  Weight: 10 kg

DRUGS (1)
  1. BETAMETHASONE [Suspect]
     Indication: LARYNGITIS
     Dosage: 10 DROPS QD ORAL
     Route: 048
     Dates: start: 20051031, end: 20051101

REACTIONS (7)
  - BRONCHIAL DISORDER [None]
  - DISEASE PROGRESSION [None]
  - INFECTION [None]
  - INTERMITTENT CLAUDICATION [None]
  - OSTEOMYELITIS [None]
  - PAIN IN EXTREMITY [None]
  - SYNOVITIS [None]
